FAERS Safety Report 8291293-1 (Version None)
Quarter: 2012Q2

REPORT INFORMATION
  Report Type: 
  Country: None (occurrence: None)
  Receive Date: 20120417
  Receipt Date: 20120402
  Transmission Date: 20120825
  Serious: Yes (Death)
  Sender: FDA-Public Use
  Company Number: GR-ARROW GEN-2012-06166

PATIENT
  Age: 74 Year
  Sex: Male

DRUGS (7)
  1. CORTISONE ACETATE [Suspect]
     Indication: AUTOIMMUNE HEPATITIS
     Dosage: UNK
     Route: 065
  2. CIPROFLOXACIN HCL [Suspect]
     Indication: ANTIBIOTIC THERAPY
     Dosage: UNK
     Route: 065
  3. VANCOMYCIN HYCHLORIDE [Suspect]
     Indication: ANTIBIOTIC THERAPY
     Dosage: UNK
     Route: 065
  4. AZATHIOPRINE [Suspect]
     Indication: AUTOIMMUNE HEPATITIS
     Dosage: UNK
     Route: 065
  5. TIGECYCLINE [Suspect]
     Indication: ANTIBIOTIC THERAPY
     Dosage: UNK
     Route: 065
  6. GENTAMICIN [Suspect]
     Indication: ANTIBIOTIC THERAPY
     Dosage: UNK
     Route: 065
  7. COLISTIN SULFATE [Suspect]
     Indication: ANTIBIOTIC THERAPY
     Dosage: UNK
     Route: 065

REACTIONS (3)
  - FUNGAEMIA [None]
  - TRICHOSPORON INFECTION [None]
  - SEPTIC SHOCK [None]
